FAERS Safety Report 25021378 (Version 4)
Quarter: 2025Q2

REPORT INFORMATION
  Report Type: Spontaneous
  Country: US (occurrence: US)
  Receive Date: 20250228
  Receipt Date: 20250528
  Transmission Date: 20250717
  Serious: Yes (Death, Life-Threatening, Hospitalization)
  Sender: ENDO
  Company Number: US-ENDO USA, INC.-2025-000690

PATIENT
  Age: 55 Year
  Sex: Male

DRUGS (8)
  1. XIAFLEX [Suspect]
     Active Substance: COLLAGENASE CLOSTRIDIUM HISTOLYTICUM
     Indication: Peyronie^s disease
     Route: 051
     Dates: start: 20250130
  2. XIAFLEX [Suspect]
     Active Substance: COLLAGENASE CLOSTRIDIUM HISTOLYTICUM
     Route: 051
     Dates: start: 202501
  3. XIAFLEX [Suspect]
     Active Substance: COLLAGENASE CLOSTRIDIUM HISTOLYTICUM
     Route: 051
  4. XIAFLEX [Suspect]
     Active Substance: COLLAGENASE CLOSTRIDIUM HISTOLYTICUM
     Route: 051
  5. XIAFLEX [Suspect]
     Active Substance: COLLAGENASE CLOSTRIDIUM HISTOLYTICUM
     Route: 051
  6. XIAFLEX [Suspect]
     Active Substance: COLLAGENASE CLOSTRIDIUM HISTOLYTICUM
     Route: 051
  7. XIAFLEX [Suspect]
     Active Substance: COLLAGENASE CLOSTRIDIUM HISTOLYTICUM
     Route: 051
     Dates: start: 2024
  8. XIAFLEX [Suspect]
     Active Substance: COLLAGENASE CLOSTRIDIUM HISTOLYTICUM
     Route: 051
     Dates: start: 20240805

REACTIONS (3)
  - Cardio-respiratory arrest [Fatal]
  - Ventricular fibrillation [Not Recovered/Not Resolved]
  - Electrocardiogram ST segment elevation [Not Recovered/Not Resolved]

NARRATIVE: CASE EVENT DATE: 20250214
